FAERS Safety Report 11064726 (Version 1)
Quarter: 2015Q2

REPORT INFORMATION
  Report Type: Spontaneous
  Country: FR (occurrence: FR)
  Receive Date: 20150424
  Receipt Date: 20150424
  Transmission Date: 20150821
  Serious: Yes (Hospitalization)
  Sender: FDA-Public Use
  Company Number: FR-ASTRAZENECA-2015SE36452

PATIENT
  Age: 22999 Day
  Sex: Female

DRUGS (6)
  1. CORTICOID [Concomitant]
     Active Substance: UNSPECIFIED INGREDIENT
     Dates: start: 20141110
  2. HYTACAND [Suspect]
     Active Substance: CANDESARTAN CILEXETIL\HYDROCHLOROTHIAZIDE
     Dosage: 8MG/12.5MG DAILY
     Route: 048
     Dates: end: 20141125
  3. LAROXYL [Concomitant]
     Active Substance: AMITRIPTYLINE
  4. EFFEXOR [Concomitant]
     Active Substance: VENLAFAXINE HYDROCHLORIDE
  5. TAHOR [Concomitant]
     Active Substance: ATORVASTATIN CALCIUM
  6. LIOREZAL [Concomitant]

REACTIONS (3)
  - Hypotension [Recovered/Resolved]
  - Hyponatraemia [Unknown]
  - Dehydration [Unknown]

NARRATIVE: CASE EVENT DATE: 20141117
